FAERS Safety Report 6566320-X (Version None)
Quarter: 2010Q1

REPORT INFORMATION
  Report Type: 
  Country: None (occurrence: None)
  Receive Date: 20100202
  Receipt Date: 20100121
  Transmission Date: 20100710
  Serious: Yes (Hospitalization)
  Sender: FDA-Public Use
  Company Number: US-ELI_LILLY_AND_COMPANY-US201001004810

PATIENT
  Sex: Female

DRUGS (15)
  1. FORTEO [Suspect]
     Indication: OSTEOPOROSIS
     Dosage: 20 UG, DAILY (1/D)
     Dates: start: 20090601
  2. CYMBALTA [Suspect]
     Indication: DEPRESSION
     Dosage: 30 MG, DAILY (1/D)
     Dates: start: 20090601
  3. PREDNISONE [Concomitant]
     Dosage: 10 MG, UNK
  4. ARAVA [Concomitant]
     Dosage: 20 MG, UNK
  5. PAXIL [Concomitant]
  6. NEXIUM [Concomitant]
  7. LISINOPRIL [Concomitant]
  8. ORAL CONTRACEPTIVE NOS [Concomitant]
  9. LORAZEPAM [Concomitant]
     Dosage: UNK, AS NEEDED
  10. LORTAB [Concomitant]
  11. DARVOCET [Concomitant]
  12. CALCIUM [Concomitant]
  13. FISH OIL [Concomitant]
  14. FOLIC ACID [Concomitant]
  15. VITAMIN D [Concomitant]

REACTIONS (4)
  - INJECTION SITE ANAESTHESIA [None]
  - INJECTION SITE PAIN [None]
  - PRODUCT QUALITY ISSUE [None]
  - SURGERY [None]
